FAERS Safety Report 18682531 (Version 1)
Quarter: 2020Q4

REPORT INFORMATION
  Report Type: Spontaneous
  Country: US (occurrence: US)
  Receive Date: 20201229
  Receipt Date: 20201229
  Transmission Date: 20210114
  Serious: No
  Sender: FDA-Public Use
  Company Number: None

PATIENT
  Age: 57 Year
  Sex: Male
  Weight: 105.75 kg

DRUGS (2)
  1. ULORIC [Suspect]
     Active Substance: FEBUXOSTAT
     Indication: HYPERURICAEMIA
     Route: 048
     Dates: start: 20151216, end: 20201228
  2. LIPITOR ULORIC 40MG [Concomitant]

REACTIONS (2)
  - Feeling hot [None]
  - Flushing [None]

NARRATIVE: CASE EVENT DATE: 20201216
